FAERS Safety Report 7208787-X (Version None)
Quarter: 2010Q4

REPORT INFORMATION
  Report Type: 
  Country: None (occurrence: None)
  Receive Date: 20101222
  Receipt Date: 20101206
  Transmission Date: 20110411
  Serious: Yes (Life-Threatening, Hospitalization, Disabling)
  Sender: FDA-Public Use
  Company Number: GB-ACCORD-007167

PATIENT
  Age: 69 Year
  Sex: Female

DRUGS (15)
  1. AMIODARONE(AMIODARONE) [Suspect]
     Indication: PRODUCT USED FOR UNKNOWN INDICATION
     Dosage: 200.00-MG/ORAL
     Route: 048
     Dates: start: 20091001, end: 20101022
  2. SIMVASTATIN [Suspect]
     Indication: PRODUCT USED FOR UNKNOWN INDICATION
     Dosage: 40.00-MG/ORAL
     Route: 048
     Dates: start: 20061201, end: 20101022
  3. ASPIRIN [Concomitant]
  4. BALSALAZIDE(BALSALAZIDE) [Concomitant]
  5. BUMETANIDE [Concomitant]
  6. CITALOPRAM(CITALOPRAM) [Concomitant]
  7. CODEINE PHOSPHATE(CODEINE PHOSPHATE) [Concomitant]
  8. FLOXACILLIN SODIUM [Concomitant]
  9. FRUSEMIDE(FRUSEMIDE) [Concomitant]
  10. NEBIVOLOL HCL [Concomitant]
  11. ACETAMINOPHEN [Concomitant]
  12. PERINDOPRIL ERBUMINE [Concomitant]
  13. SPIRONOLACTONE [Concomitant]
  14. TRIMETHOPRIM [Concomitant]
  15. WARFARIN(WARFAIRN) [Concomitant]

REACTIONS (4)
  - INTERNATIONAL NORMALISED RATIO INCREASED [None]
  - MOBILITY DECREASED [None]
  - RENAL IMPAIRMENT [None]
  - RHABDOMYOLYSIS [None]
